FAERS Safety Report 23292549 (Version 1)
Quarter: 2023Q4

REPORT INFORMATION
  Report Type: Spontaneous
  Country: US (occurrence: None)
  Receive Date: 20231212
  Receipt Date: 20231212
  Transmission Date: 20240110
  Serious: Yes (Other)
  Sender: FDA-Public Use
  Company Number: None

PATIENT
  Age: 73 Year
  Sex: Male
  Weight: 78.4 kg

DRUGS (2)
  1. YESCARTA [Suspect]
     Active Substance: AXICABTAGENE CILOLEUCEL
     Indication: Follicular lymphoma
     Dosage: 1 TOT - TOTAL ONCE INTRAVENOUS
     Route: 042
     Dates: start: 20231121, end: 20231121
  2. YESCARTA [Suspect]
     Active Substance: AXICABTAGENE CILOLEUCEL
     Indication: Diffuse large B-cell lymphoma

REACTIONS (2)
  - Cytokine release syndrome [None]
  - Immune effector cell-associated neurotoxicity syndrome [None]

NARRATIVE: CASE EVENT DATE: 20231122
